FAERS Safety Report 6680751-9 (Version None)
Quarter: 2010Q2

REPORT INFORMATION
  Report Type: 
  Country: None (occurrence: None)
  Receive Date: 20100414
  Receipt Date: 20100412
  Transmission Date: 20101027
  Serious: Yes (Hospitalization)
  Sender: FDA-Public Use
  Company Number: IT-WYE-G05595110

PATIENT
  Sex: Male

DRUGS (5)
  1. TAZOCIN [Suspect]
     Indication: ENDOCARDITIS
     Route: 042
     Dates: start: 20091224, end: 20100103
  2. COUMADIN [Concomitant]
     Indication: ANTICOAGULANT THERAPY
     Dosage: 3 MG
     Route: 048
     Dates: start: 20080101
  3. NEXIUM [Concomitant]
     Indication: PROPHYLAXIS AGAINST GASTROINTESTINAL ULCER
     Dosage: 40 MG
     Route: 048
     Dates: start: 20080101
  4. TORVAST [Concomitant]
     Indication: DYSLIPIDAEMIA
     Dosage: 20 MG
     Route: 048
     Dates: start: 20080101
  5. ASPIRIN [Concomitant]
     Indication: THROMBOSIS PROPHYLAXIS
     Dosage: 100 MG
     Route: 048
     Dates: start: 20080101

REACTIONS (1)
  - DERMATITIS EXFOLIATIVE [None]
